FAERS Safety Report 11397444 (Version 2)
Quarter: 2015Q3

REPORT INFORMATION
  Report Type: Report from Study
  Country: TR (occurrence: TR)
  Receive Date: 20150819
  Receipt Date: 20150908
  Transmission Date: 20151125
  Serious: Yes (Hospitalization)
  Sender: FDA-Public Use
  Company Number: TR-SA-2015SA122540

PATIENT
  Age: 44 Year
  Sex: Female
  Weight: 73.6 kg

DRUGS (4)
  1. PANTOPRAZOLE [Concomitant]
     Active Substance: PANTOPRAZOLE SODIUM
     Indication: CHRONIC GASTRITIS
     Dates: start: 20150504
  2. TINZAPARIN [Concomitant]
     Active Substance: TINZAPARIN
     Indication: THROMBOSIS PROPHYLAXIS
     Dates: start: 20150504, end: 20150602
  3. ALEMTUZUMAB [Suspect]
     Active Substance: ALEMTUZUMAB
     Indication: T-CELL PROLYMPHOCYTIC LEUKAEMIA
     Route: 065
     Dates: start: 20150602, end: 20150602
  4. SUCRALFATE. [Concomitant]
     Active Substance: SUCRALFATE
     Indication: GASTROOESOPHAGEAL REFLUX DISEASE
     Dosage: 3X1 SCALE
     Dates: start: 20150504

REACTIONS (1)
  - Pleural effusion [Recovered/Resolved with Sequelae]

NARRATIVE: CASE EVENT DATE: 20150602
